FAERS Safety Report 11417448 (Version 2)
Quarter: 2015Q4

REPORT INFORMATION
  Report Type: Spontaneous
  Country: US (occurrence: US)
  Receive Date: 20150825
  Receipt Date: 20151001
  Transmission Date: 20160304
  Serious: Yes (Hospitalization)
  Sender: FDA-Public Use
  Company Number: US-APOTEX-2015AP011503

PATIENT

DRUGS (1)
  1. ZONISAMIDE. [Suspect]
     Active Substance: ZONISAMIDE
     Indication: SEIZURE
     Dosage: UNK
     Route: 065
     Dates: start: 2012

REACTIONS (7)
  - Pollakiuria [Unknown]
  - Hyperhidrosis [Unknown]
  - Cognitive disorder [Recovered/Resolved]
  - Menopause [Unknown]
  - Alopecia [Unknown]
  - Urine abnormality [Unknown]
  - Drug ineffective [Unknown]

NARRATIVE: CASE EVENT DATE: 2012
